FAERS Safety Report 18286988 (Version 2)
Quarter: 2020Q4

REPORT INFORMATION
  Report Type: Spontaneous
  Country: ES (occurrence: ES)
  Receive Date: 20200921
  Receipt Date: 20201005
  Transmission Date: 20210113
  Serious: Yes (Life-Threatening, Disabling, Other)
  Sender: FDA-Public Use
  Company Number: ES-AUROBINDO-AUR-APL-2020-048341

PATIENT
  Age: 34 Year
  Sex: Male
  Weight: 59 kg

DRUGS (3)
  1. REXER FLAS [Suspect]
     Active Substance: MIRTAZAPINE
     Indication: DEPRESSION
     Dosage: 30 MILLIGRAM
     Route: 048
     Dates: start: 20200831
  2. MIRTAZAPINE. [Suspect]
     Active Substance: MIRTAZAPINE
     Dosage: UNK
     Route: 048
     Dates: start: 20200901
  3. MIRTAZAPINE. [Suspect]
     Active Substance: MIRTAZAPINE
     Indication: DEPRESSION
     Dosage: 30 MILLIGRAM, BEFORE SLEEP
     Route: 048
     Dates: start: 20120712

REACTIONS (10)
  - Overdose [Unknown]
  - Dysphagia [Unknown]
  - Sleep disorder [Recovered/Resolved]
  - Feeling abnormal [Recovered/Resolved]
  - Insomnia [Recovered/Resolved]
  - Musculoskeletal stiffness [Unknown]
  - Hyperhidrosis [Recovered/Resolved]
  - Therapeutic product effect delayed [Unknown]
  - Seizure [Recovered/Resolved]
  - Expired product administered [Unknown]

NARRATIVE: CASE EVENT DATE: 2020
